FAERS Safety Report 8141871-5 (Version None)
Quarter: 2012Q1

REPORT INFORMATION
  Report Type: 
  Country: None (occurrence: None)
  Receive Date: 20120216
  Receipt Date: 20120210
  Transmission Date: 20120608
  Serious: Yes (Other)
  Sender: FDA-Public Use
  Company Number: JP-PFIZER INC-2012038120

PATIENT
  Age: 66 Year
  Sex: Male

DRUGS (4)
  1. FAMOTIDINE [Concomitant]
     Indication: PREMEDICATION
     Dosage: UNK
     Route: 041
     Dates: start: 20120117, end: 20120117
  2. IRINOTECAN HCL [Suspect]
     Indication: RECTAL CANCER
     Dosage: 120 MG/BODY
     Route: 041
     Dates: start: 20120117, end: 20120117
  3. DECADRON [Concomitant]
     Indication: PREMEDICATION
     Dosage: UNK
     Route: 041
     Dates: start: 20120117, end: 20120117
  4. ALOXI [Concomitant]
     Indication: PREMEDICATION
     Dosage: UNK
     Route: 041
     Dates: start: 20120117, end: 20120117

REACTIONS (4)
  - COUGH [None]
  - SNEEZING [None]
  - PHARYNGEAL STENOSIS [None]
  - FLUSHING [None]
